FAERS Safety Report 4346494-1 (Version None)
Quarter: 2004Q2

REPORT INFORMATION
  Report Type: 
  Country: None (occurrence: None)
  Receive Date: 20040426
  Receipt Date: 20030915
  Transmission Date: 20050107
  Serious: No
  Sender: FDA-Public Use
  Company Number: US-BRISTOL-MYERS SQUIBB COMPANY-12382230

PATIENT
  Age: 42 Year
  Sex: Female
  Weight: 54 kg

DRUGS (1)
  1. PARAPLATIN POWDER [Suspect]
     Route: 055
     Dates: start: 20030915, end: 20030915

REACTIONS (2)
  - ACCIDENTAL EXPOSURE [None]
  - CHEST DISCOMFORT [None]
